FAERS Safety Report 6526294-4 (Version None)
Quarter: 2009Q4

REPORT INFORMATION
  Report Type: 
  Country: None (occurrence: None)
  Receive Date: 20091222
  Receipt Date: 20091120
  Transmission Date: 20100525
  Serious: Yes (Life-Threatening, Hospitalization)
  Sender: FDA-Public Use
  Company Number: GB-EBEWE-0563MTX09

PATIENT
  Age: 77 Year
  Sex: Male

DRUGS (4)
  1. METHOTREXATE [Suspect]
     Indication: RHEUMATOID ARTHRITIS
     Dosage: 22.5 MG, WEEKLY, ORAL
     Route: 048
  2. FOLIC ACID [Concomitant]
  3. LANSOPRAZOLE [Concomitant]
  4. METOCLOPRAMIDE [Concomitant]

REACTIONS (1)
  - OESOPHAGEAL CARCINOMA [None]
